FAERS Safety Report 5288041-6 (Version None)
Quarter: 2007Q2

REPORT INFORMATION
  Report Type: 
  Country: None (occurrence: None)
  Receive Date: 20070405
  Receipt Date: 20070328
  Transmission Date: 20071010
  Serious: Yes (Death)
  Sender: FDA-Public Use
  Company Number: US-BRISTOL-MYERS SQUIBB COMPANY-13729769

PATIENT
  Sex: Male

DRUGS (3)
  1. ETOPOSIDE [Suspect]
     Indication: TESTICULAR GERM CELL CANCER
  2. CISPLATIN [Suspect]
     Indication: TESTICULAR GERM CELL CANCER
  3. BLEOMYCIN [Suspect]
     Indication: TESTICULAR GERM CELL CANCER

REACTIONS (1)
  - MYOCARDIAL ISCHAEMIA [None]
